FAERS Safety Report 6024392-5 (Version None)
Quarter: 2008Q4

REPORT INFORMATION
  Report Type: 
  Country: None (occurrence: None)
  Receive Date: 20081229
  Receipt Date: 20081229
  Transmission Date: 20090506
  Serious: Yes (Life-Threatening, Hospitalization, Disabling)
  Sender: FDA-Public Use
  Company Number: None

PATIENT
  Sex: Male
  Weight: 86.1834 kg

DRUGS (1)
  1. ZYPREXA [Suspect]
     Indication: SCHIZOPHRENIA
     Dosage: 20MG 1 AT NIGHT
     Dates: start: 20040201, end: 20060101

REACTIONS (2)
  - PANCREATITIS CHRONIC [None]
  - VISUAL IMPAIRMENT [None]
